FAERS Safety Report 23377753 (Version 1)
Quarter: 2024Q1

REPORT INFORMATION
  Report Type: Spontaneous
  Country: US (occurrence: None)
  Receive Date: 20240105
  Receipt Date: 20240105
  Transmission Date: 20240409
  Serious: Yes (Other)
  Sender: FDA-Public Use
  Company Number: None

PATIENT
  Age: 54 Year
  Sex: Female

DRUGS (1)
  1. EPCLUSA [Suspect]
     Active Substance: SOFOSBUVIR\VELPATASVIR
     Indication: Hepatitis C
     Dosage: 400-100MG ONCE DAILY BY MOUTH? ?
     Route: 048
     Dates: start: 20231010, end: 20240102

REACTIONS (4)
  - Weight increased [None]
  - Abdominal distension [None]
  - Fatigue [None]
  - Skin discolouration [None]

NARRATIVE: CASE EVENT DATE: 20231208
